FAERS Safety Report 9646432 (Version 2)
Quarter: 2013Q4

REPORT INFORMATION
  Report Type: Report from Study
  Country: US (occurrence: US)
  Receive Date: 20131025
  Receipt Date: 20131111
  Transmission Date: 20140711
  Serious: Yes (Hospitalization, Other)
  Sender: FDA-Public Use
  Company Number: US-BRISTOL-MYERS SQUIBB COMPANY-19608629

PATIENT
  Age: 60 Year
  Sex: Female
  Weight: 51.7 kg

DRUGS (1)
  1. IPILIMUMAB [Suspect]
     Indication: CERVIX CARCINOMA
     Dosage: TOAL DOSE:512.5 MG?LASR DOSE:04SEP13
     Route: 042
     Dates: start: 20130814

REACTIONS (6)
  - Lymphocyte count decreased [Recovering/Resolving]
  - Decreased appetite [Not Recovered/Not Resolved]
  - Hypokalaemia [Recovering/Resolving]
  - Hypomagnesaemia [Recovering/Resolving]
  - Weight decreased [Recovering/Resolving]
  - Diarrhoea [Recovering/Resolving]
